FAERS Safety Report 9987014 (Version 1)
Quarter: 2014Q1

REPORT INFORMATION
  Report Type: Spontaneous
  Country: US (occurrence: US)
  Receive Date: 20140307
  Receipt Date: 20140307
  Transmission Date: 20141002
  Serious: No
  Sender: FDA-Public Use
  Company Number: US-AMGEN-USASP2014008351

PATIENT
  Age: 55 Year
  Sex: Female

DRUGS (4)
  1. ENBREL [Suspect]
     Indication: PSORIATIC ARTHROPATHY
     Dosage: 50 MG, QWK
     Route: 065
     Dates: start: 20050501
  2. ENBREL [Suspect]
     Indication: PSORIASIS
  3. HUMIRA [Concomitant]
     Dosage: 50 MG, UNK (TWICE A MONTH)
     Dates: start: 2012, end: 201209
  4. METHOTREXATE [Concomitant]
     Dosage: UNK (DECRESING DOSE)
     Dates: start: 201209, end: 201212

REACTIONS (7)
  - Local swelling [Recovered/Resolved]
  - Limb deformity [Recovered/Resolved]
  - Musculoskeletal pain [Recovered/Resolved]
  - Joint swelling [Recovered/Resolved]
  - Pain in extremity [Recovered/Resolved]
  - Gait disturbance [Recovered/Resolved]
  - Mobility decreased [Recovered/Resolved]
